FAERS Safety Report 7231425-7 (Version None)
Quarter: 2011Q1

REPORT INFORMATION
  Report Type: 
  Country: None (occurrence: None)
  Receive Date: 20110118
  Receipt Date: 20110113
  Transmission Date: 20110831
  Serious: Yes (Death)
  Sender: FDA-Public Use
  Company Number: PHHO2011TR01084

PATIENT
  Sex: Female
  Weight: 79 kg

DRUGS (4)
  1. AFINITOR [Suspect]
     Indication: METASTATIC RENAL CELL CARCINOMA
     Dosage: 10 MG, QD
     Route: 048
     Dates: start: 20100714, end: 20101215
  2. DEKORT [Concomitant]
     Indication: BRAIN OEDEMA
  3. LOCAL RADIOTHERAPY [Concomitant]
  4. IBUPROFEN [Concomitant]
     Indication: PAIN
     Dosage: UNK
     Dates: start: 20050101

REACTIONS (3)
  - CARDIO-RESPIRATORY ARREST [None]
  - NEOPLASM MALIGNANT [None]
  - CONCOMITANT DISEASE PROGRESSION [None]
